FAERS Safety Report 23525160 (Version 3)
Quarter: 2024Q1

REPORT INFORMATION
  Report Type: Spontaneous
  Country: US (occurrence: US)
  Receive Date: 20240215
  Receipt Date: 20240228
  Transmission Date: 20240410
  Serious: Yes (Hospitalization, Other)
  Sender: FDA-Public Use
  Company Number: US-BRISTOL-MYERS SQUIBB COMPANY-2024-019901

PATIENT
  Age: 80 Year
  Sex: Female

DRUGS (1)
  1. POMALYST [Suspect]
     Active Substance: POMALIDOMIDE
     Indication: Plasma cell myeloma recurrent
     Dosage: TAKE 1 CAPSULE BY MOUTH WHOLE W/WATER W/OR W/OUT FOOD AT THE SAME TIME EACH DAY DAYS 1-21 OF EACH 28
     Route: 048
     Dates: start: 20240119, end: 20240127

REACTIONS (11)
  - Psoriasis [Not Recovered/Not Resolved]
  - Fall [Not Recovered/Not Resolved]
  - Contusion [Not Recovered/Not Resolved]
  - Eye contusion [Unknown]
  - Swelling [Unknown]
  - Lip injury [Unknown]
  - Syncope [Unknown]
  - Dizziness [Unknown]
  - Balance disorder [Unknown]
  - Malaise [Unknown]
  - Adverse reaction [Recovered/Resolved]

NARRATIVE: CASE EVENT DATE: 20240129
